FAERS Safety Report 5311313-3 (Version None)
Quarter: 2007Q2

REPORT INFORMATION
  Report Type: 
  Country: None (occurrence: None)
  Receive Date: 20070430
  Receipt Date: 20070425
  Transmission Date: 20071010
  Serious: Yes (Other)
  Sender: FDA-Public Use
  Company Number: CA-BRISTOL-MYERS SQUIBB COMPANY-13759717

PATIENT
  Age: 43 Year
  Sex: Female

DRUGS (2)
  1. ORENCIA [Suspect]
     Indication: RHEUMATOID ARTHRITIS
     Route: 042
     Dates: start: 20061001, end: 20061101
  2. HYPERTENSION MEDICATION [Concomitant]

REACTIONS (3)
  - ABDOMINAL PAIN [None]
  - OEDEMA PERIPHERAL [None]
  - THROMBOPHLEBITIS [None]
